FAERS Safety Report 19009677 (Version 3)
Quarter: 2021Q2

REPORT INFORMATION
  Report Type: Report from Study
  Country: None (occurrence: US)
  Receive Date: 20210316
  Receipt Date: 20210518
  Transmission Date: 20210717
  Serious: Yes (Hospitalization, Other)
  Sender: FDA-Public Use
  Company Number: US-ABBVIE-21K-163-3776380-00

PATIENT
  Age: 68 Year
  Sex: Female
  Weight: 86.26 kg

DRUGS (21)
  1. PROLIA [Concomitant]
     Active Substance: DENOSUMAB
     Indication: BONE DENSITOMETRY
  2. TURMERIC [Concomitant]
     Active Substance: HERBALS\TURMERIC
     Indication: PRODUCT USED FOR UNKNOWN INDICATION
  3. MYRBETRIQ [Concomitant]
     Active Substance: MIRABEGRON
     Indication: POLLAKIURIA
  4. RINVOQ [Suspect]
     Active Substance: UPADACITINIB
     Route: 048
  5. CLARITIN [Concomitant]
     Active Substance: LORATADINE
     Indication: PRODUCT USED FOR UNKNOWN INDICATION
  6. TRAMADOL. [Concomitant]
     Active Substance: TRAMADOL
     Indication: PAIN
  7. VITAMIN D2 [Concomitant]
     Active Substance: ERGOCALCIFEROL
     Indication: PRODUCT USED FOR UNKNOWN INDICATION
  8. RINVOQ [Suspect]
     Active Substance: UPADACITINIB
     Indication: RHEUMATOID ARTHRITIS
     Route: 048
     Dates: start: 202001
  9. FLUTICASONE PROPIONATE. [Concomitant]
     Active Substance: FLUTICASONE PROPIONATE
     Indication: NOCTURNAL DYSPNOEA
  10. COVID?19 VACCINE NOS. [Suspect]
     Active Substance: COVID-19 VACCINE NOS
     Indication: COVID-19 IMMUNISATION
     Dosage: JOHNSON+JOHNSON
     Route: 030
     Dates: start: 20210315, end: 20210315
  11. ROPINIROLE. [Concomitant]
     Active Substance: ROPINIROLE
     Indication: RESTLESS LEGS SYNDROME
  12. PREDNISONE. [Concomitant]
     Active Substance: PREDNISONE
     Indication: PAIN
  13. AMLODIPINE [Concomitant]
     Active Substance: AMLODIPINE BESYLATE
     Indication: BLOOD PRESSURE MEASUREMENT
  14. ZINC. [Concomitant]
     Active Substance: ZINC
     Indication: SARS-COV-2 TEST POSITIVE
  15. TELMISARTAN. [Concomitant]
     Active Substance: TELMISARTAN
     Indication: BLOOD PRESSURE MEASUREMENT
  16. METOPROLOL. [Concomitant]
     Active Substance: METOPROLOL
     Indication: BLOOD PRESSURE MEASUREMENT
  17. OMEGA 3 [Concomitant]
     Active Substance: OMEGA-3 FATTY ACIDS
     Indication: PRODUCT USED FOR UNKNOWN INDICATION
  18. POTASSIUM CHLORIDE. [Concomitant]
     Active Substance: POTASSIUM CHLORIDE
     Indication: BLOOD POTASSIUM DECREASED
  19. FLUTICASONE PROPIONATE. [Concomitant]
     Active Substance: FLUTICASONE PROPIONATE
     Indication: HYPERSENSITIVITY
  20. PRILOSEC [Concomitant]
     Active Substance: OMEPRAZOLE MAGNESIUM
     Indication: PRODUCT USED FOR UNKNOWN INDICATION
  21. PRESERVISION AREDS 2 [Concomitant]
     Active Substance: MINERALS\VITAMINS
     Indication: PRODUCT USED FOR UNKNOWN INDICATION

REACTIONS (22)
  - Haemorrhoids [Recovered/Resolved]
  - Pain in extremity [Not Recovered/Not Resolved]
  - Myalgia [Recovering/Resolving]
  - Asthenia [Not Recovered/Not Resolved]
  - Pollakiuria [Recovering/Resolving]
  - Varicose vein [Not Recovered/Not Resolved]
  - Pneumonia [Recovered/Resolved]
  - Dry mouth [Not Recovered/Not Resolved]
  - Fatigue [Recovered/Resolved]
  - Cataract [Unknown]
  - Genital rash [Recovered/Resolved]
  - Hiccups [Recovered/Resolved]
  - Asthenia [Not Recovered/Not Resolved]
  - Oral candidiasis [Recovered/Resolved]
  - Thrombosis [Recovered/Resolved]
  - SARS-CoV-2 test positive [Recovered/Resolved]
  - Thrombosis [Recovered/Resolved]
  - Vulval ulceration [Recovered/Resolved]
  - Alopecia [Recovering/Resolving]
  - Pain in extremity [Recovered/Resolved]
  - Candida infection [Recovered/Resolved]
  - Blister [Recovered/Resolved]

NARRATIVE: CASE EVENT DATE: 2019
